FAERS Safety Report 7690593-3 (Version None)
Quarter: 2011Q3

REPORT INFORMATION
  Report Type: 
  Country: None (occurrence: None)
  Receive Date: 20110818
  Receipt Date: 20110809
  Transmission Date: 20111222
  Serious: Yes (Hospitalization, Other)
  Sender: FDA-Public Use
  Company Number: US-BAYER-201042070NA

PATIENT
  Age: 28 Year
  Sex: Female
  Weight: 76.19 kg

DRUGS (8)
  1. EFFEXOR XR [Concomitant]
     Dosage: 75 MG, UNK
  2. ACYCLOVIR [Concomitant]
     Dosage: 800 MG, UNK
  3. YAZ [Suspect]
     Indication: MENSTRUAL DISORDER
     Route: 048
     Dates: start: 20080215, end: 20081116
  4. PROAIR HFA [Concomitant]
  5. ST. JOHN'S WORT [Concomitant]
  6. METRONIDAZOLE [Concomitant]
  7. HYDROCODONE BITARTRATE AND ACETAMINOPHEN [Concomitant]
     Dosage: UNK
  8. KLONOPIN [Concomitant]

REACTIONS (2)
  - DEEP VEIN THROMBOSIS [None]
  - PULMONARY EMBOLISM [None]
